FAERS Safety Report 17020029 (Version 1)
Quarter: 2019Q4

REPORT INFORMATION
  Report Type: Report from Study
  Country: US (occurrence: US)
  Receive Date: 20191112
  Receipt Date: 20191112
  Transmission Date: 20200122
  Serious: No
  Sender: FDA-Public Use
  Company Number: NVSC2019US030874

PATIENT
  Sex: Female

DRUGS (1)
  1. COSENTYX [Suspect]
     Active Substance: SECUKINUMAB
     Indication: PSORIATIC ARTHROPATHY
     Dosage: 300 MG (QWEEKLY X 5 WEEKS THEN 300MG)
     Route: 058
     Dates: start: 201906

REACTIONS (3)
  - Headache [Unknown]
  - Injection site haemorrhage [Unknown]
  - Nausea [Unknown]
